FAERS Safety Report 22184154 (Version 2)
Quarter: 2023Q2

REPORT INFORMATION
  Report Type: Spontaneous
  Country: US (occurrence: US)
  Receive Date: 20230407
  Receipt Date: 20230424
  Transmission Date: 20230721
  Serious: Yes (Hospitalization)
  Sender: FDA-Public Use
  Company Number: US-BRISTOL-MYERS SQUIBB COMPANY-2023-047786

PATIENT
  Age: 72 Year
  Sex: Female

DRUGS (2)
  1. SPRYCEL [Suspect]
     Active Substance: DASATINIB
     Indication: Breast cancer
     Route: 048
     Dates: start: 20230209
  2. SPRYCEL [Suspect]
     Active Substance: DASATINIB
     Indication: Bone cancer

REACTIONS (4)
  - Platelet count decreased [Unknown]
  - Off label use [Unknown]
  - White blood cell count decreased [Unknown]
  - Haemoglobin decreased [Unknown]

NARRATIVE: CASE EVENT DATE: 20230216
